FAERS Safety Report 9796981 (Version 1)
Quarter: 2014Q1

REPORT INFORMATION
  Report Type: Spontaneous
  Country: US (occurrence: US)
  Receive Date: 20140105
  Receipt Date: 20140105
  Transmission Date: 20141002
  Serious: Yes (Death, Other)
  Sender: FDA-Public Use
  Company Number: US-UCBSA-107703

PATIENT
  Age: 47 Year
  Sex: Male

DRUGS (5)
  1. ALPRAZOLAM [Suspect]
     Dosage: ROUTE: PARENTERAL
  2. HEROIN [Suspect]
     Dosage: ROUTE: PARENTERAL
  3. TAPENTADOL [Suspect]
     Dosage: ROUTE: PARENTERAL
  4. OXYCODONE [Suspect]
     Dosage: ROUTE: PARENTERAL
  5. CODEINE [Suspect]
     Dosage: ROUTE: PARENTERAL

REACTIONS (1)
  - Drug abuse [Fatal]
